FAERS Safety Report 13961254 (Version 2)
Quarter: 2021Q2

REPORT INFORMATION
  Report Type: Report from Study
  Country: US (occurrence: US)
  Receive Date: 20170912
  Receipt Date: 20210413
  Transmission Date: 20210716
  Serious: Yes (Hospitalization, Other)
  Sender: FDA-Public Use
  Company Number: US-BAYER-2017-168951

PATIENT
  Sex: Female

DRUGS (2)
  1. GADOLINIUM [Suspect]
     Active Substance: GADOLINIUM
     Dosage: UNK
  2. GADOLINIUM [Suspect]
     Active Substance: GADOLINIUM
     Dosage: THE LAST ONE WAS ON 9?JUN?2016
     Dates: start: 20160609

REACTIONS (17)
  - Paraesthesia [None]
  - Pruritus [None]
  - Hypoaesthesia [None]
  - Skin discolouration [None]
  - Nontherapeutic agent urine positive [None]
  - Mental impairment [None]
  - Abdominal discomfort [None]
  - Abdominal pain [None]
  - Nausea [None]
  - Formication [None]
  - Arthralgia [None]
  - Cognitive disorder [None]
  - Gadolinium deposition disease [Recovering/Resolving]
  - Burning sensation [None]
  - Disturbance in attention [None]
  - Communication disorder [None]
  - Eye irritation [None]

NARRATIVE: CASE EVENT DATE: 20160719
